FAERS Safety Report 7700085-0 (Version None)
Quarter: 2011Q3

REPORT INFORMATION
  Report Type: 
  Country: None (occurrence: None)
  Receive Date: 20110822
  Receipt Date: 20110817
  Transmission Date: 20111222
  Serious: Yes (Death)
  Sender: FDA-Public Use
  Company Number: GB-ABBOTT-11P-167-0847300-00

PATIENT
  Age: 4 Year
  Sex: Female

DRUGS (7)
  1. VALPROATE SODIUM [Suspect]
     Indication: ATTENTION DEFICIT/HYPERACTIVITY DISORDER
  2. VALPROATE SODIUM [Suspect]
     Indication: PSYCHOMOTOR HYPERACTIVITY
  3. CLONIDINE [Suspect]
     Indication: PSYCHOMOTOR HYPERACTIVITY
  4. QUETIAPINE [Concomitant]
     Indication: PRODUCT USED FOR UNKNOWN INDICATION
  5. VALPROATE SODIUM [Suspect]
     Indication: BIPOLAR DISORDER
  6. CLONIDINE [Suspect]
     Indication: BIPOLAR DISORDER
  7. CLONIDINE [Suspect]
     Indication: ATTENTION DEFICIT/HYPERACTIVITY DISORDER

REACTIONS (1)
  - DEATH [None]
